FAERS Safety Report 18590909 (Version 1)
Quarter: 2020Q4

REPORT INFORMATION
  Report Type: Spontaneous
  Country: BR (occurrence: BR)
  Receive Date: 20201208
  Receipt Date: 20201208
  Transmission Date: 20210114
  Serious: Yes (Other)
  Sender: FDA-Public Use
  Company Number: BR-PFIZER INC-2020335316

PATIENT
  Age: 59 Year
  Sex: Male

DRUGS (1)
  1. SUTENT [Suspect]
     Active Substance: SUNITINIB MALATE
     Indication: RENAL CANCER
     Dosage: 50 MG
     Dates: start: 20200812, end: 20200913

REACTIONS (13)
  - Malaise [Unknown]
  - Anaemia [Unknown]
  - Dizziness [Unknown]
  - Mouth injury [Unknown]
  - Diarrhoea [Unknown]
  - Pain [Unknown]
  - Gait inability [Unknown]
  - Suicidal ideation [Unknown]
  - Neoplasm progression [Unknown]
  - Wound [Unknown]
  - Hypersomnia [Unknown]
  - Eating disorder [Unknown]
  - Constipation [Unknown]
